FAERS Safety Report 4358911-1 (Version None)
Quarter: 2004Q2

REPORT INFORMATION
  Report Type: 
  Country: None (occurrence: None)
  Receive Date: 20040512
  Receipt Date: 20040503
  Transmission Date: 20050107
  Serious: Yes (Hospitalization)
  Sender: FDA-Public Use
  Company Number: 200410244BFR

PATIENT
  Age: 63 Year
  Sex: Male

DRUGS (3)
  1. LEVITRA [Suspect]
     Indication: ERECTILE DYSFUNCTION
     Dosage: 20 MG, TOTAL DAILY, ORAL; SEE IMAGE
     Route: 048
     Dates: start: 20040418
  2. KARDEGIC [Concomitant]
  3. LEXOMIL [Concomitant]

REACTIONS (5)
  - DRUG INEFFECTIVE [None]
  - ERYTHEMA [None]
  - EYE REDNESS [None]
  - GASTROENTERITIS [None]
  - HEART RATE INCREASED [None]
